FAERS Safety Report 6632982-1 (Version None)
Quarter: 2010Q1

REPORT INFORMATION
  Report Type: 
  Country: None (occurrence: None)
  Receive Date: 20100310
  Receipt Date: 20100302
  Transmission Date: 20100710
  Serious: Yes (Hospitalization)
  Sender: FDA-Public Use
  Company Number: TPA2010A00973

PATIENT
  Age: 33 Year
  Sex: Female

DRUGS (5)
  1. ROZEREM [Suspect]
     Indication: INSOMNIA
     Dosage: 8 MG, QHS, PER ORAL
     Route: 048
  2. FLUVOXAMINE MALEATE [Concomitant]
  3. TRAZODONE HCL [Concomitant]
  4. ZYPREXA [Concomitant]
  5. BUSPAR [Concomitant]

REACTIONS (2)
  - HYPERSOMNIA [None]
  - SEROTONIN SYNDROME [None]
